FAERS Safety Report 8109419 (Version 2)
Quarter: 2013Q3

REPORT INFORMATION
  Report Type: Spontaneous
  Country: US (occurrence: US)
  Receive Date: 20110826
  Receipt Date: 20130712
  Transmission Date: 20140515
  Serious: Yes (Hospitalization)
  Sender: FDA-Public Use
  Company Number: US-BAYER-2011-075156

PATIENT
  Age: 25 Year
  Sex: Female
  Weight: 53.06 kg

DRUGS (1)
  1. YASMIN [Suspect]
     Dosage: UNK
     Dates: start: 2001, end: 2004

REACTIONS (5)
  - Cerebrovascular accident [None]
  - Gallbladder injury [None]
  - Injury [None]
  - Pain [None]
  - Mental disorder [None]
